FAERS Safety Report 4784333-5 (Version None)
Quarter: 2005Q3

REPORT INFORMATION
  Report Type: 
  Country: None (occurrence: None)
  Receive Date: 20050930
  Receipt Date: 20050920
  Transmission Date: 20060218
  Serious: Yes (Death)
  Sender: FDA-Public Use
  Company Number: KR-JNJFOC-20050903290

PATIENT
  Sex: Female
  Weight: 48 kg

DRUGS (8)
  1. REMINYL [Suspect]
     Route: 048
  2. REMINYL [Suspect]
     Route: 048
  3. RISPERDAL [Concomitant]
     Route: 048
     Dates: start: 20050514, end: 20050628
  4. NIZATIDINE [Concomitant]
     Indication: GASTROINTESTINAL DISORDER
     Route: 048
  5. GINKGO BILOBA EXTRACT [Concomitant]
     Route: 048
  6. MAGNESIUM HYDROXIDE TAB [Concomitant]
     Indication: CONSTIPATION
     Route: 048
  7. STILLEN [Concomitant]
     Indication: GASTRITIS
     Route: 048
  8. SOXINASE [Concomitant]
     Indication: DYSPEPSIA
     Route: 048

REACTIONS (2)
  - CARDIAC ARREST [None]
  - MYOCARDIAL INFARCTION [None]
